FAERS Safety Report 15647357 (Version 1)
Quarter: 2018Q4

REPORT INFORMATION
  Report Type: Spontaneous
  Country: BR (occurrence: BR)
  Receive Date: 20181122
  Receipt Date: 20181122
  Transmission Date: 20190205
  Serious: Yes (Other)
  Sender: FDA-Public Use
  Company Number: BR-SUN PHARMACEUTICAL INDUSTRIES LTD-2018R1-191742

PATIENT
  Age: 60 Year
  Sex: Male

DRUGS (2)
  1. ADALIMUMAB [Suspect]
     Active Substance: ADALIMUMAB
     Indication: AXIAL SPONDYLOARTHRITIS
     Dosage: UNKNOWN
     Route: 065
     Dates: start: 2013
  2. METHOTREXATE. [Suspect]
     Active Substance: METHOTREXATE
     Indication: AXIAL SPONDYLOARTHRITIS
     Dosage: UNKNOWN
     Route: 065
     Dates: start: 2013

REACTIONS (1)
  - Tenosynovitis [Recovering/Resolving]
